FAERS Safety Report 15302172 (Version 1)
Quarter: 2018Q3

REPORT INFORMATION
  Report Type: Spontaneous
  Country: US (occurrence: US)
  Receive Date: 20180821
  Receipt Date: 20180821
  Transmission Date: 20181010
  Serious: No
  Sender: FDA-Public Use
  Company Number: US-TARO-2018TAR00162

PATIENT
  Sex: Female

DRUGS (4)
  1. NORVASC [Suspect]
     Active Substance: AMLODIPINE BESYLATE
     Dosage: UNK
     Dates: start: 201802, end: 201802
  2. COZAAR [Concomitant]
     Active Substance: LOSARTAN POTASSIUM
  3. EPLERENONE. [Concomitant]
     Active Substance: EPLERENONE
  4. WARFARIN SODIUM TABLETS USP 1MG [Suspect]
     Active Substance: WARFARIN SODIUM
     Indication: PULMONARY THROMBOSIS
     Dosage: 3.5 MG, 1X/DAY IN THE EVENING
     Route: 048
     Dates: start: 201802

REACTIONS (6)
  - Tremor [Not Recovered/Not Resolved]
  - Poor quality sleep [Recovered/Resolved]
  - Road traffic accident [Recovered/Resolved]
  - Musculoskeletal pain [Not Recovered/Not Resolved]
  - Product substitution issue [Recovered/Resolved]
  - Nervousness [Recovered/Resolved]

NARRATIVE: CASE EVENT DATE: 201802
